FAERS Safety Report 8450188-0 (Version None)
Quarter: 2012Q2

REPORT INFORMATION
  Report Type: 
  Country: None (occurrence: None)
  Receive Date: 20120613
  Receipt Date: 20120529
  Transmission Date: 20120825
  Serious: Yes (Hospitalization, Other)
  Sender: FDA-Public Use
  Company Number: VENL20120004

PATIENT
  Age: 82 Year
  Sex: Female

DRUGS (1)
  1. VENLAFAXINE HCL [Suspect]
     Indication: PRODUCT USED FOR UNKNOWN INDICATION
     Dosage: 37.5 MG, UNK, ORAL
     Route: 048

REACTIONS (5)
  - SYNCOPE [None]
  - LEFT VENTRICULAR DYSFUNCTION [None]
  - STRESS CARDIOMYOPATHY [None]
  - ELECTROCARDIOGRAM QT PROLONGED [None]
  - CHEST PAIN [None]
